FAERS Safety Report 23112191 (Version 1)
Quarter: 2023Q4

REPORT INFORMATION
  Report Type: Report from Study
  Country: JP (occurrence: JP)
  Receive Date: 20231026
  Receipt Date: 20231026
  Transmission Date: 20240109
  Serious: Yes (Other)
  Sender: FDA-Public Use
  Company Number: JP-TAKEDA-2023TJP013696

PATIENT
  Age: 71 Year
  Sex: Male
  Weight: 80 kg

DRUGS (3)
  1. PANITUMUMAB [Suspect]
     Active Substance: PANITUMUMAB
     Indication: Adenocarcinoma of colon
     Dosage: 480 MILLIGRAM, Q2WK
     Route: 065
     Dates: start: 20210309, end: 20210528
  2. IRINOTECAN [Suspect]
     Active Substance: IRINOTECAN
     Indication: Adenocarcinoma of colon
     Dosage: 290 MILLIGRAM, Q2WEEKS
     Route: 065
     Dates: start: 20210309, end: 20210430
  3. IRINOTECAN [Suspect]
     Active Substance: IRINOTECAN
     Dosage: 290 MILLIGRAM, Q2WEEKS
     Route: 065
     Dates: start: 20210528, end: 20210528

REACTIONS (7)
  - Neutrophil count decreased [Unknown]
  - Haemoglobin decreased [Not Recovered/Not Resolved]
  - Dermatitis acneiform [Unknown]
  - Fatigue [Unknown]
  - Alopecia [Recovered/Resolved]
  - Blood magnesium decreased [Not Recovered/Not Resolved]
  - Nasopharyngitis [Unknown]
